FAERS Safety Report 17925759 (Version 2)
Quarter: 2020Q3

REPORT INFORMATION
  Report Type: Spontaneous
  Country: US (occurrence: US)
  Receive Date: 20200622
  Receipt Date: 20200717
  Transmission Date: 20201103
  Serious: Yes (Death, Life-Threatening, Hospitalization, Other)
  Sender: FDA-Public Use
  Company Number: US-GILEAD-2020-0474420

PATIENT
  Age: 77 Year
  Sex: Male
  Weight: 70.6 kg

DRUGS (25)
  1. DEXMEDETOMIDINE. [Concomitant]
     Active Substance: DEXMEDETOMIDINE
  2. KETAMINE [Concomitant]
     Active Substance: KETAMINE
  3. LORAZEPAM. [Concomitant]
     Active Substance: LORAZEPAM
  4. SODIUM POLYSTYRENE SULFONATE. [Concomitant]
     Active Substance: SODIUM POLYSTYRENE SULFONATE
  5. ACETAMINOPHEN. [Concomitant]
     Active Substance: ACETAMINOPHEN
  6. INSULIN REGULAR HM [Concomitant]
     Active Substance: INSULIN NOS
  7. SODIUM BICARBONATE. [Concomitant]
     Active Substance: SODIUM BICARBONATE
  8. FENTANYL. [Concomitant]
     Active Substance: FENTANYL
  9. PANTOPRAZOLE [Concomitant]
     Active Substance: PANTOPRAZOLE
  10. DOCUSATE;SENNA [Concomitant]
  11. VALPROIC ACID. [Concomitant]
     Active Substance: VALPROIC ACID
  12. VASOPRESSIN. [Concomitant]
     Active Substance: VASOPRESSIN
  13. HALOPERIDOL. [Concomitant]
     Active Substance: HALOPERIDOL
  14. HYDROCORTISONE. [Concomitant]
     Active Substance: HYDROCORTISONE
  15. LEVETIRACETAM. [Concomitant]
     Active Substance: LEVETIRACETAM
  16. METRONIDAZOLE. [Concomitant]
     Active Substance: METRONIDAZOLE
  17. MIDAZOLAM. [Concomitant]
     Active Substance: MIDAZOLAM
  18. MILK OF MAGNESIA [Concomitant]
     Active Substance: MAGNESIUM HYDROXIDE
  19. REMDESIVIR. [Suspect]
     Active Substance: REMDESIVIR
     Dosage: 100 MG, QD
     Route: 042
     Dates: start: 20200605, end: 20200608
  20. SODIUM CHLORIDE. [Concomitant]
     Active Substance: SODIUM CHLORIDE
  21. REMDESIVIR. [Suspect]
     Active Substance: REMDESIVIR
     Indication: COVID-19
     Dosage: 200 MG, ONCE
     Route: 042
     Dates: start: 20200604, end: 20200604
  22. PLASMA [Concomitant]
     Active Substance: HUMAN PLASMA
     Dosage: UNK
     Dates: start: 20200605, end: 20200605
  23. CHLORHEXIDINE [Concomitant]
     Active Substance: CHLORHEXIDINE
  24. QUETIAPINE. [Concomitant]
     Active Substance: QUETIAPINE
  25. TRAZODONE [Concomitant]
     Active Substance: TRAZODONE HYDROCHLORIDE

REACTIONS (8)
  - Vomiting [Unknown]
  - Blood potassium increased [Recovered/Resolved]
  - Blood creatinine increased [Unknown]
  - Death [Fatal]
  - Thrombocytopenia [Unknown]
  - Haematocrit decreased [Unknown]
  - Blood pressure decreased [Recovered/Resolved]
  - Haemoglobin decreased [Unknown]

NARRATIVE: CASE EVENT DATE: 20200604
